FAERS Safety Report 10150293 (Version 2)
Quarter: 2014Q2

REPORT INFORMATION
  Report Type: Report from Study
  Country: CA (occurrence: CA)
  Receive Date: 20140502
  Receipt Date: 20140502
  Transmission Date: 20141212
  Serious: Yes (Death, Hospitalization)
  Sender: FDA-Public Use
  Company Number: CA-BRISTOL-MYERS SQUIBB COMPANY-20088613

PATIENT
  Age: 79 Year
  Sex: Female

DRUGS (9)
  1. ORENCIA [Suspect]
     Indication: RHEUMATOID ARTHRITIS
     Dosage: 1DF=750 UNIT NOS.
     Dates: start: 20120827, end: 20131215
  2. PREDNISONE [Concomitant]
  3. ARTHROTEC [Concomitant]
  4. SULFASALAZINE [Concomitant]
  5. PANTOLOC [Concomitant]
  6. VITAMIN D [Concomitant]
  7. CALCIUM [Concomitant]
  8. COSOPT [Concomitant]
  9. TYLENOL [Concomitant]

REACTIONS (1)
  - Neoplasm malignant [Fatal]
